FAERS Safety Report 5013576-0 (Version None)
Quarter: 2006Q2

REPORT INFORMATION
  Report Type: 
  Country: None (occurrence: None)
  Receive Date: 20060525
  Receipt Date: 20060515
  Transmission Date: 20061013
  Serious: Yes (Death, Other)
  Sender: FDA-Public Use
  Company Number: HQWYE363116MAY06

PATIENT
  Age: 55 Year
  Sex: Female

DRUGS (2)
  1. PREMPRO [Suspect]
  2. CYCRIN [Suspect]

REACTIONS (2)
  - ENDOMETRIAL CANCER [None]
  - OVARIAN CANCER [None]
